FAERS Safety Report 7319899-4 (Version None)
Quarter: 2011Q1

REPORT INFORMATION
  Report Type: 
  Country: None (occurrence: None)
  Receive Date: 20110228
  Receipt Date: 20101123
  Transmission Date: 20110831
  Serious: No
  Sender: FDA-Public Use
  Company Number: A0894694A

PATIENT
  Age: 50 Year
  Sex: Female

DRUGS (3)
  1. LAMICTAL [Suspect]
     Indication: BIPOLAR DISORDER
     Dosage: 1.5TAB PER DAY
     Route: 048
  2. XANAX [Concomitant]
  3. LITHIUM [Concomitant]

REACTIONS (2)
  - HEADACHE [None]
  - DIZZINESS [None]
